FAERS Safety Report 7802999-X (Version None)
Quarter: 2011Q4

REPORT INFORMATION
  Report Type: 
  Country: None (occurrence: None)
  Receive Date: 20111007
  Receipt Date: 20110929
  Transmission Date: 20120403
  Serious: Yes (Hospitalization, Other)
  Sender: FDA-Public Use
  Company Number: JP-BRISTOL-MYERS SQUIBB COMPANY-15998420

PATIENT
  Age: 70 Year
  Sex: Female

DRUGS (14)
  1. ETANERCEPT [Concomitant]
  2. VOLTAREN [Concomitant]
     Indication: RHEUMATOID ARTHRITIS
     Dosage: VOLTAREN TAPE AND VOLTAREN SUPPO
  3. NEUROTROPIN [Concomitant]
  4. METHYCOBAL [Concomitant]
  5. LIPITOR [Concomitant]
  6. MEDROL [Concomitant]
     Indication: RHEUMATOID ARTHRITIS
     Route: 048
  7. URSO 250 [Concomitant]
  8. CHINESE HERBS [Concomitant]
  9. IBRUPROFEN [Concomitant]
     Indication: RHEUMATOID ARTHRITIS
  10. FAMOTIDINE [Concomitant]
  11. MUCOSOLVAN [Concomitant]
  12. ORENCIA [Suspect]
     Indication: RHEUMATOID ARTHRITIS
     Dosage: DATE OF ADMIN: 11MAR11, 24MAR11, 15APR11.
     Route: 041
     Dates: start: 20110225
  13. FELBINAC [Concomitant]
     Indication: RHEUMATOID ARTHRITIS
  14. MARZULENE-S [Concomitant]

REACTIONS (4)
  - PLEURAL EFFUSION [None]
  - PNEUMONIA [None]
  - FEMUR FRACTURE [None]
  - ATELECTASIS [None]
